FAERS Safety Report 9304460 (Version 9)
Quarter: 2015Q2

REPORT INFORMATION
  Report Type: Spontaneous
  Country: US (occurrence: US)
  Receive Date: 20130523
  Receipt Date: 20150501
  Transmission Date: 20150821
  Serious: Yes (Hospitalization, Other)
  Sender: FDA-Public Use
  Company Number: US-009507513-1305USA012219

PATIENT
  Sex: Male
  Weight: 70.23 kg

DRUGS (3)
  1. PROSCAR [Suspect]
     Active Substance: FINASTERIDE
     Indication: PRODUCT USED FOR UNKNOWN INDICATION
     Dosage: 5 MG, UNK
     Route: 048
     Dates: start: 19960327
  2. PROPECIA [Suspect]
     Active Substance: FINASTERIDE
     Indication: ALOPECIA
     Dosage: 1 MG, UNK
     Route: 048
     Dates: start: 20071001
  3. FINASTERIDE. [Suspect]
     Active Substance: FINASTERIDE
     Indication: ALOPECIA
     Dosage: 5 MG, QD
     Route: 048

REACTIONS (50)
  - Painful ejaculation [Unknown]
  - Bronchitis chronic [Not Recovered/Not Resolved]
  - Rosacea [Unknown]
  - Hypotension [Unknown]
  - Bradycardia [Unknown]
  - Hormone level abnormal [Unknown]
  - Pain in extremity [Unknown]
  - Exostosis [Unknown]
  - Oropharyngeal pain [Unknown]
  - Tendon operation [Unknown]
  - Genital hypoaesthesia [Unknown]
  - Dyspnoea [Unknown]
  - Penile pain [Unknown]
  - Urine flow decreased [Not Recovered/Not Resolved]
  - Skin burning sensation [Unknown]
  - Prostate cryoablation [Unknown]
  - Arthralgia [Unknown]
  - Testicular pain [Unknown]
  - Inflammatory pain [Unknown]
  - Sleep disorder [Unknown]
  - Anxiety [Not Recovered/Not Resolved]
  - Prostatitis [Not Recovered/Not Resolved]
  - Benign prostatic hyperplasia [Unknown]
  - Fatigue [Unknown]
  - Sexual dysfunction [Not Recovered/Not Resolved]
  - Libido decreased [Unknown]
  - Cardiac operation [Unknown]
  - Hypertension [Unknown]
  - Seborrhoeic dermatitis [Unknown]
  - Diarrhoea [Unknown]
  - Pain in extremity [Unknown]
  - Chest pain [Unknown]
  - Coronary artery bypass [Unknown]
  - Respiratory fume inhalation disorder [Unknown]
  - Soft tissue injury [Unknown]
  - Brain injury [Unknown]
  - Emphysema [Unknown]
  - Hypoaesthesia [Unknown]
  - Drug ineffective [Unknown]
  - Dysphonia [Unknown]
  - Organic erectile dysfunction [Recovering/Resolving]
  - Bladder outlet obstruction [Unknown]
  - Depression [Not Recovered/Not Resolved]
  - Musculoskeletal chest pain [Unknown]
  - Headache [Unknown]
  - Flushing [Unknown]
  - Urinary tract infection [Unknown]
  - Hypercholesterolaemia [Unknown]
  - Groin pain [Unknown]
  - Gastrooesophageal reflux disease [Unknown]

NARRATIVE: CASE EVENT DATE: 20000119
